FAERS Safety Report 8530892 (Version 4)
Quarter: 2012Q4

REPORT INFORMATION
  Report Type: 
  Country: JP (occurrence: JP)
  Receive Date: 20120426
  Receipt Date: 20120906
  Transmission Date: 20130627
  Serious: Yes (Hospitalization)
  Sender: FDA-Public Use
  Company Number: JP-AMGEN-JPNSP2012024387

PATIENT
  Age: 76 Year
  Sex: Female
  Weight: 61.8 kg

DRUGS (8)
  1. ENBREL [Suspect]
     Indication: RHEUMATOID ARTHRITIS
     Dosage: 25 mg, weekly
     Route: 058
     Dates: start: 20110617, end: 20111021
  2. RHEUMATREX [Suspect]
     Indication: RHEUMATOID ARTHRITIS
     Dosage: 6 mg, weekly
     Route: 048
     Dates: start: 201011, end: 20111021
  3. METHOTREXATE SODIUM [Concomitant]
     Indication: RHEUMATOID ARTHRITIS
  4. LORCAM [Concomitant]
     Indication: ANALGESIC THERAPY
     Dosage: 12 mg, 1x/day
     Route: 048
     Dates: start: 201011
  5. EPADEL                             /01682401/ [Concomitant]
     Indication: BLOOD CHOLESTEROL INCREASED
     Dosage: 900 mg, 1x/day
     Route: 048
     Dates: start: 201011
  6. VITAMEDIN                          /00176001/ [Concomitant]
     Indication: HYPOVITAMINOSIS
     Dosage: 75 mg, 1x/day
     Route: 048
     Dates: start: 201011
  7. JUVELA                             /00110502/ [Concomitant]
     Indication: HYPOVITAMINOSIS
     Dosage: 300 mg, 1x/day
     Route: 048
     Dates: start: 201011
  8. ANPLAG [Concomitant]
     Indication: POOR PERIPHERAL CIRCULATION
     Dosage: 300 mg, 1x/day
     Route: 048
     Dates: start: 201011

REACTIONS (2)
  - Rheumatoid arthritis [Unknown]
  - Interstitial lung disease [Recovering/Resolving]
